FAERS Safety Report 8793398 (Version 4)
Quarter: 2013Q1

REPORT INFORMATION
  Report Type: Report from Study
  Country: JP (occurrence: JP)
  Receive Date: 20120917
  Receipt Date: 20130218
  Transmission Date: 20140127
  Serious: Yes (Hospitalization, Other)
  Sender: FDA-Public Use
  Company Number: JP-ROCHE-1120548

PATIENT
  Age: 58 Year
  Sex: Female
  Weight: 45.4 kg

DRUGS (10)
  1. BLINDED BI 201335 [Suspect]
     Indication: HEPATITIS C
     Route: 048
     Dates: start: 20120704, end: 20120905
  2. RIBAVIRIN [Suspect]
     Indication: HEPATITIS C
     Route: 048
     Dates: start: 20120704, end: 20120905
  3. RIBAVIRIN [Suspect]
     Route: 048
     Dates: start: 20120912, end: 20120920
  4. PEGINTERFERON ALFA-2B [Suspect]
     Indication: HEPATITIS C
     Route: 058
     Dates: start: 20120704, end: 20120905
  5. PEGINTERFERON ALFA-2B [Suspect]
     Route: 058
     Dates: start: 20120912, end: 20120920
  6. LOXOPROFEN SODIUM [Concomitant]
     Indication: PYREXIA
     Route: 048
     Dates: start: 20120704
  7. URSO [Concomitant]
  8. PRIMPERAN (JAPAN) [Concomitant]
  9. MARZULENE S [Concomitant]
     Indication: GASTRITIS PROPHYLAXIS
     Route: 048
     Dates: start: 20120704
  10. MOHRUS [Concomitant]
     Indication: MUSCULOSKELETAL STIFFNESS
     Route: 062
     Dates: start: 20120709

REACTIONS (3)
  - Rash [Recovered/Resolved]
  - Nausea [Recovered/Resolved]
  - Vertigo [Recovered/Resolved]
